FAERS Safety Report 14058045 (Version 2)
Quarter: 2017Q4

REPORT INFORMATION
  Report Type: Spontaneous
  Country: US (occurrence: US)
  Receive Date: 20171006
  Receipt Date: 20171012
  Transmission Date: 20180321
  Serious: Yes (Other)
  Sender: FDA-Public Use
  Company Number: US-ASTRAZENECA-2006BM09306

PATIENT
  Age: 53 Year
  Sex: Female

DRUGS (14)
  1. BYETTA [Suspect]
     Active Substance: EXENATIDE
     Indication: TYPE 2 DIABETES MELLITUS
     Route: 058
     Dates: start: 200605
  2. ASPIRIN. [Concomitant]
     Active Substance: ASPIRIN
  3. MAGNESIUM [Concomitant]
     Active Substance: MAGNESIUM
  4. FOLIC ACID. [Concomitant]
     Active Substance: FOLIC ACID
  5. BYETTA [Suspect]
     Active Substance: EXENATIDE
     Indication: TYPE 2 DIABETES MELLITUS
     Route: 058
     Dates: start: 200603, end: 200605
  6. OMEPRAZOLE. [Suspect]
     Active Substance: OMEPRAZOLE
     Route: 048
  7. SIMVASTATIN. [Concomitant]
     Active Substance: SIMVASTATIN
  8. METFORMIN [Concomitant]
     Active Substance: METFORMIN HYDROCHLORIDE
     Route: 048
  9. LORATADINE. [Concomitant]
     Active Substance: LORATADINE
  10. LEVETIRACETAM. [Concomitant]
     Active Substance: LEVETIRACETAM
  11. PANTOPRAZOLE [Concomitant]
     Active Substance: PANTOPRAZOLE
  12. ALEVE [Concomitant]
     Active Substance: NAPROXEN SODIUM
  13. LYNPARZA [Suspect]
     Active Substance: OLAPARIB
     Route: 048
  14. VITAMIN B12 [Concomitant]
     Active Substance: CYANOCOBALAMIN

REACTIONS (9)
  - Fatigue [Not Recovered/Not Resolved]
  - Neuropathy peripheral [Unknown]
  - Gastrointestinal sounds abnormal [Unknown]
  - Thrombocytopenia [Unknown]
  - Constipation [Not Recovered/Not Resolved]
  - Ovarian epithelial cancer [Unknown]
  - Blood glucose increased [Not Recovered/Not Resolved]
  - Muscle spasms [Unknown]
  - Malignant neoplasm progression [Unknown]

NARRATIVE: CASE EVENT DATE: 200605
